FAERS Safety Report 6132649-2 (Version None)
Quarter: 2009Q1

REPORT INFORMATION
  Report Type: 
  Country: None (occurrence: None)
  Receive Date: 20090324
  Receipt Date: 20090313
  Transmission Date: 20090719
  Serious: Yes (Hospitalization, Other)
  Sender: FDA-Public Use
  Company Number: GXKR2009US03318

PATIENT
  Age: 51 Year
  Sex: Male
  Weight: 87 kg

DRUGS (11)
  1. ONDANSETRON [Suspect]
     Dosage: 4 MG, TWO DOSES, INTRAVENOUS
     Route: 042
  2. GLYCOPYROLATE (GLYCOPYRONIUM BROMIDE) [Concomitant]
  3. ATORVASTATIN CALCIUM [Concomitant]
  4. MULTI-VITAMINS [Concomitant]
  5. GLUCOSAMINE W/ CHONDROITIN (CHONDROITIN SULFATE, GLUCOSAMINE) [Concomitant]
  6. CEFAZOLIN AND DEXTROSE [Concomitant]
  7. ROCURONIUM BROMIDE [Concomitant]
  8. ISOFLURANE [Concomitant]
  9. PROPOFOL [Concomitant]
  10. FENTANYL-25 [Concomitant]
  11. MIDAZOLAM HCL [Concomitant]

REACTIONS (11)
  - ARTERIOSPASM CORONARY [None]
  - ATRIAL FIBRILLATION [None]
  - CHEST PAIN [None]
  - CORONARY ARTERY STENOSIS [None]
  - ELECTROCARDIOGRAM ST SEGMENT ELEVATION [None]
  - HYPERHIDROSIS [None]
  - HYPOTENSION [None]
  - LEFT ATRIAL DILATATION [None]
  - LEFT VENTRICULAR HYPERTROPHY [None]
  - NAUSEA [None]
  - VOMITING [None]
